FAERS Safety Report 19408494 (Version 1)
Quarter: 2021Q2

REPORT INFORMATION
  Report Type: Spontaneous
  Country: NL (occurrence: NL)
  Receive Date: 20210612
  Receipt Date: 20210612
  Transmission Date: 20210717
  Serious: Yes (Hospitalization, Other)
  Sender: FDA-Public Use
  Company Number: NL-AUROBINDO-AUR-APL-2021-023355

PATIENT
  Age: 8 Year
  Sex: Female

DRUGS (1)
  1. TRIMETHOPRIM+SULFAMETHOXAZOLE [Suspect]
     Active Substance: SULFAMETHOXAZOLE\TRIMETHOPRIM
     Indication: CYSTITIS
     Dosage: 450 MILLIGRAM, 3 TIMES A DAY
     Route: 065

REACTIONS (3)
  - Petechiae [Unknown]
  - Haematoma [Unknown]
  - Thrombocytopenia [Recovered/Resolved]
